FAERS Safety Report 10181215 (Version 1)
Quarter: 2014Q2

REPORT INFORMATION
  Report Type: Spontaneous
  Country: US (occurrence: US)
  Receive Date: 20140519
  Receipt Date: 20140519
  Transmission Date: 20141212
  Serious: No
  Sender: FDA-Public Use
  Company Number: US-AMGEN INC.-USASP2014028367

PATIENT
  Age: 67 Year
  Sex: Female

DRUGS (7)
  1. PROLIA [Suspect]
     Indication: OSTEOPENIA
     Dosage: UNK
     Route: 065
     Dates: start: 2012
  2. ADVAIR [Concomitant]
  3. MONTELUKAST [Concomitant]
  4. MEGESTROL [Concomitant]
  5. ACYCLOVIR                          /00587301/ [Concomitant]
  6. ALEVE [Concomitant]
  7. BYSTOLIC [Concomitant]

REACTIONS (2)
  - Bone pain [Unknown]
  - Asthma [Unknown]
